FAERS Safety Report 23787941 (Version 1)
Quarter: 2024Q2

REPORT INFORMATION
  Report Type: Other
  Country: NL (occurrence: GR)
  Receive Date: 20240426
  Receipt Date: 20240426
  Transmission Date: 20240716
  Serious: Yes (Other)
  Sender: FDA-Public Use
  Company Number: None

PATIENT

DRUGS (2)
  1. PITAVASTATIN [Suspect]
     Active Substance: PITAVASTATIN
     Indication: Hyperlipidaemia
     Dosage: 1 DF, QD
     Dates: start: 202112
  2. ROSUVASTATIN [Suspect]
     Active Substance: ROSUVASTATIN
     Indication: Hyperlipidaemia
     Dosage: 1 DF, QD
     Dates: start: 202404

REACTIONS (3)
  - Gait disturbance [Unknown]
  - Myalgia [Unknown]
  - Fatigue [Unknown]

NARRATIVE: CASE EVENT DATE: 20211201
